FAERS Safety Report 9355540 (Version 1)
Quarter: 2013Q2

REPORT INFORMATION
  Report Type: Spontaneous
  Country: US (occurrence: US)
  Receive Date: 20130619
  Receipt Date: 20130619
  Transmission Date: 20140414
  Serious: No
  Sender: FDA-Public Use
  Company Number: US-009507513-1306USA002199

PATIENT
  Age: 25 Year
  Sex: Female

DRUGS (1)
  1. IMPLANON [Suspect]
     Indication: CONTRACEPTION
     Dosage: 1 DF, UNK
     Route: 059
     Dates: start: 201012

REACTIONS (7)
  - Weight increased [Unknown]
  - Polymenorrhoea [Unknown]
  - Dysmenorrhoea [Unknown]
  - Loss of libido [Unknown]
  - Headache [Unknown]
  - Medical device complication [Unknown]
  - Menorrhagia [Unknown]
